FAERS Safety Report 18490567 (Version 1)
Quarter: 2020Q4

REPORT INFORMATION
  Report Type: Spontaneous
  Country: FI (occurrence: FI)
  Receive Date: 20201111
  Receipt Date: 20201111
  Transmission Date: 20210114
  Serious: Yes (Hospitalization)
  Sender: FDA-Public Use
  Company Number: FI-TEVA-2020-FI-1847156

PATIENT
  Age: 72 Year
  Sex: Female

DRUGS (5)
  1. AMLODIPINE [Suspect]
     Active Substance: AMLODIPINE BESYLATE
     Indication: HYPERTENSION
     Dosage: 5,MG,DAILY
     Route: 048
     Dates: start: 20201007, end: 20201009
  2. ORISANTIN [Concomitant]
     Active Substance: DIPYRIDAMOLE
     Indication: CIRCULATING ANTICOAGULANT
     Dosage: 2,DF,DAILY
     Route: 048
     Dates: start: 2014
  3. BISOPROLOL RATIOPHARM [Concomitant]
     Active Substance: BISOPROLOL
     Indication: PALPITATIONS
     Dosage: ,,AS NECESSARY
     Route: 048
     Dates: start: 20200927
  4. LOSATRIX COMP [Concomitant]
     Indication: HYPERTENSION
     Route: 048
     Dates: start: 2014, end: 20201010
  5. ATORVASTATIN RATIOPHARM [Concomitant]
     Active Substance: ATORVASTATIN
     Indication: HYPERCHOLESTEROLAEMIA
     Dosage: 80,MG,DAILY
     Route: 048
     Dates: start: 2014

REACTIONS (3)
  - Palpitations [Recovered/Resolved]
  - Dyskinesia [Recovered/Resolved]
  - Erythema [Recovered/Resolved]

NARRATIVE: CASE EVENT DATE: 20201009
